FAERS Safety Report 8584628-3 (Version None)
Quarter: 2012Q3

REPORT INFORMATION
  Report Type: 
  Country: None (occurrence: None)
  Receive Date: 20120802
  Receipt Date: 20120802
  Transmission Date: 20120928
  Serious: Yes (Other)
  Sender: FDA-Public Use
  Company Number: None

PATIENT
  Sex: Male

DRUGS (1)
  1. CARBAMAZEPINE [Suspect]
     Indication: CONVULSION
     Dosage: 200MG 2 TIMES A DAY PO
     Route: 048
     Dates: start: 20120729, end: 20120731

REACTIONS (4)
  - SPEECH DISORDER [None]
  - PRODUCT QUALITY ISSUE [None]
  - INSOMNIA [None]
  - HYPERSENSITIVITY [None]
